FAERS Safety Report 15629798 (Version 1)
Quarter: 2018Q4

REPORT INFORMATION
  Report Type: Spontaneous
  Country: US (occurrence: US)
  Receive Date: 20181117
  Receipt Date: 20181117
  Transmission Date: 20190205
  Serious: No
  Sender: FDA-Public Use
  Company Number: US-JNJFOC-20181034773

PATIENT
  Age: 69 Year
  Sex: Female

DRUGS (9)
  1. LYRICA [Concomitant]
     Active Substance: PREGABALIN
     Indication: DIABETIC NEUROPATHY
     Dosage: STARTED ABOUT 3 YEARS AGO; 1, 2 OR 3 CAPSULES PER DAY
     Route: 065
  2. INSULIN [Concomitant]
     Active Substance: INSULIN NOS
     Indication: DIABETES MELLITUS
     Dosage: 90-100 UNITS, 2-3 TIMES A DAY
     Route: 065
  3. LEVOTHYROXINE. [Concomitant]
     Active Substance: LEVOTHYROXINE
     Indication: PRODUCT USED FOR UNKNOWN INDICATION
     Dosage: FIRST THING IN THE MORNING
     Route: 048
  4. INSULIN, REGULAR [Concomitant]
     Active Substance: INSULIN NOS
     Indication: DIABETES MELLITUS
     Dosage: 40-50 UNITS, TWO TIMES PER DAY OR THREE TIMES PER DAY IF SHE HAS A THIRD MEAL
     Route: 065
  5. LYRICA [Concomitant]
     Active Substance: PREGABALIN
     Indication: PAIN
     Dosage: STARTED ABOUT 3 YEARS AGO; 1, 2 OR 3 CAPSULES PER DAY
     Route: 065
  6. LYRICA [Concomitant]
     Active Substance: PREGABALIN
     Indication: FIBROMYALGIA
     Dosage: STARTED ABOUT 3 YEARS AGO; 1, 2 OR 3 CAPSULES PER DAY
     Route: 065
  7. TYLENOL EXTRA STRENGTH [Suspect]
     Active Substance: ACETAMINOPHEN
     Indication: SLEEP DISORDER THERAPY
     Dosage: STARTED TAKING ON AN UNSPECIFIED DATE LATER IN AUG-2018; 3 TABLETS AT  NIGHT AS NEEDED
     Route: 048
     Dates: start: 201808
  8. TYLENOL EXTRA STRENGTH [Suspect]
     Active Substance: ACETAMINOPHEN
     Indication: PAIN
     Dosage: STARTED TAKING ON AN UNSPECIFIED DATE LATER IN AUG-2018; 3 TABLETS AT  NIGHT AS NEEDED
     Route: 048
     Dates: start: 201808
  9. VICTOZA [Concomitant]
     Active Substance: LIRAGLUTIDE
     Indication: DIABETES MELLITUS
     Dosage: 1.8 UNIT ONCE PER DAY; STARTED A YEAR AND A HALF OR SO
     Route: 065

REACTIONS (2)
  - Product use in unapproved indication [Unknown]
  - Incorrect dose administered [Unknown]

NARRATIVE: CASE EVENT DATE: 2018
